FAERS Safety Report 8263482-3 (Version None)
Quarter: 2012Q2

REPORT INFORMATION
  Report Type: 
  Country: None (occurrence: None)
  Receive Date: 20120405
  Receipt Date: 20120330
  Transmission Date: 20120825
  Serious: Yes (Other)
  Sender: FDA-Public Use
  Company Number: US-BAYER-2012-031455

PATIENT
  Age: 34 Year
  Sex: Female

DRUGS (1)
  1. MIRENA [Suspect]
     Indication: CONTRACEPTION
     Dosage: 20 MCG/24HR, CONT
     Route: 015
     Dates: start: 20110307

REACTIONS (10)
  - INFECTION [None]
  - IMPAIRED WORK ABILITY [None]
  - ABDOMINAL PAIN [None]
  - PARAESTHESIA [None]
  - BREAST TENDERNESS [None]
  - WEIGHT INCREASED [None]
  - HEADACHE [None]
  - VAGINAL DISCHARGE [None]
  - VAGINAL HAEMORRHAGE [None]
  - ABDOMINAL DISCOMFORT [None]
